FAERS Safety Report 4547048-4 (Version None)
Quarter: 2004Q4

REPORT INFORMATION
  Report Type: 
  Country: None (occurrence: None)
  Receive Date: 20041223
  Receipt Date: 20040915
  Transmission Date: 20050328
  Serious: No
  Sender: FDA-Public Use
  Company Number: US-JNJFOC-20040706550

PATIENT
  Age: 28 Year
  Sex: Female
  Weight: 70.3075 kg

DRUGS (9)
  1. ORTHO EVRA [Suspect]
     Indication: CONTRACEPTION
     Dosage: 1 DOSE(S), 3 IN 4 WEEK, TRANSDERMAL
     Route: 062
     Dates: start: 20040301, end: 20040807
  2. LIPITOR [Concomitant]
  3. CIPRO [Concomitant]
  4. GERITOL COMPLETE (GERITOL) [Concomitant]
  5. OMNICEF (CEFIDINIR) [Concomitant]
  6. MEDENT DM (ALL OTHER THERAPEUTIC PRODUCTS) [Concomitant]
  7. XYLOXYLINE (ALL OTHER THERAPEUTIC PRODUCTS) [Concomitant]
  8. PROTONIX [Concomitant]
  9. PROPOXYPHENE (DEXTROPROPOXYPHENE) [Concomitant]

REACTIONS (11)
  - ABDOMINAL PAIN [None]
  - BREAST TENDERNESS [None]
  - DYSPEPSIA [None]
  - KIDNEY INFECTION [None]
  - NAUSEA [None]
  - NIPPLE PAIN [None]
  - OLIGOMENORRHOEA [None]
  - PHARYNGITIS STREPTOCOCCAL [None]
  - POLLAKIURIA [None]
  - UPPER RESPIRATORY TRACT INFECTION [None]
  - WEIGHT DECREASED [None]
